FAERS Safety Report 4991056-6 (Version None)
Quarter: 2006Q2

REPORT INFORMATION
  Report Type: 
  Country: None (occurrence: None)
  Receive Date: 20060503
  Receipt Date: 20060208
  Transmission Date: 20061013
  Serious: Yes (Hospitalization)
  Sender: FDA-Public Use
  Company Number: US-MERCK-0602USA02563

PATIENT
  Age: 63 Year
  Sex: Male

DRUGS (2)
  1. VIOXX [Suspect]
     Indication: BACK PAIN
     Route: 048
  2. VIOXX [Suspect]
     Route: 048
     Dates: start: 20030101

REACTIONS (13)
  - ARRHYTHMIA [None]
  - ATRIAL FIBRILLATION [None]
  - ATRIAL FLUTTER [None]
  - CALCINOSIS [None]
  - CHEST PAIN [None]
  - COLONIC POLYP [None]
  - COMPRESSION FRACTURE [None]
  - DERMATITIS CONTACT [None]
  - DYSPNOEA EXERTIONAL [None]
  - HYPERHIDROSIS [None]
  - HYPERTENSION [None]
  - OSTEOARTHRITIS [None]
  - SINUS BRADYCARDIA [None]
